FAERS Safety Report 20976657 (Version 5)
Quarter: 2022Q4

REPORT INFORMATION
  Report Type: Other
  Country: JP (occurrence: JP)
  Receive Date: 20220617
  Receipt Date: 20221021
  Transmission Date: 20230113
  Serious: Yes (Hospitalization)
  Sender: FDA-Public Use
  Company Number: JP-CHUGAI-2022018631

PATIENT
  Age: 70 Year
  Sex: Male
  Weight: 64.1 kg

DRUGS (7)
  1. ATEZOLIZUMAB [Suspect]
     Active Substance: ATEZOLIZUMAB
     Indication: Lung adenocarcinoma
     Dosage: 1200 MILLIGRAM, ONCE/4WEEKS
     Route: 041
     Dates: start: 20201215, end: 20210113
  2. BEVACIZUMAB [Suspect]
     Active Substance: BEVACIZUMAB
     Indication: Lung adenocarcinoma
     Dosage: 960 MILLIGRAM, ONCE/4WEEKS
     Route: 041
     Dates: start: 20201215, end: 20210113
  3. CARBOPLATIN [Concomitant]
     Active Substance: CARBOPLATIN
     Indication: Lung adenocarcinoma
     Dosage: 670 MILLIGRAM
     Route: 041
     Dates: start: 20201215
  4. CARBOPLATIN [Concomitant]
     Active Substance: CARBOPLATIN
     Dosage: 685 MILLIGRAM, QD
     Route: 041
     Dates: start: 20210209, end: 20210209
  5. CARBOPLATIN [Concomitant]
     Active Substance: CARBOPLATIN
     Dosage: 620 MILLIGRAM, QD
     Route: 041
     Dates: start: 20210309, end: 20210309
  6. PACLITAXEL [Concomitant]
     Active Substance: PACLITAXEL
     Indication: Lung adenocarcinoma
     Dosage: 340 MILLIGRAM
     Route: 041
     Dates: start: 20201215
  7. PACLITAXEL [Concomitant]
     Active Substance: PACLITAXEL
     Dosage: 350 MILLIGRAM, ONCE/4WEEKS
     Route: 041
     Dates: start: 20210209, end: 20210309

REACTIONS (1)
  - Anaphylactic reaction [Recovered/Resolved]

NARRATIVE: CASE EVENT DATE: 20210113
